FAERS Safety Report 14196350 (Version 2)
Quarter: 2017Q4

REPORT INFORMATION
  Report Type: Spontaneous
  Country: NL (occurrence: NL)
  Receive Date: 20171116
  Receipt Date: 20171128
  Transmission Date: 20180321
  Serious: Yes (Hospitalization, Other)
  Sender: FDA-Public Use
  Company Number: NL-UNITED THERAPEUTICS-UNT-2017-016123

PATIENT
  Age: 52 Year
  Sex: Male
  Weight: 85 kg

DRUGS (1)
  1. REMODULIN [Suspect]
     Active Substance: TREPROSTINIL
     Indication: PULMONARY ARTERIAL HYPERTENSION
     Dosage: UNK
     Route: 041
     Dates: start: 20171004, end: 20171109

REACTIONS (3)
  - Klebsiella test positive [Recovered/Resolved]
  - Musculoskeletal pain [Recovered/Resolved]
  - Device related infection [Recovered/Resolved]

NARRATIVE: CASE EVENT DATE: 201710
